FAERS Safety Report 20564817 (Version 3)
Quarter: 2023Q1

REPORT INFORMATION
  Report Type: Spontaneous
  Country: US (occurrence: US)
  Receive Date: 20220308
  Receipt Date: 20230228
  Transmission Date: 20230417
  Serious: No
  Sender: FDA-Public Use
  Company Number: US-ALLERGAN-2116734US

PATIENT
  Age: 74 Year
  Sex: Female

DRUGS (3)
  1. ESTRADIOL [Suspect]
     Active Substance: ESTRADIOL
     Indication: Urinary tract infection
  2. ESTRADIOL [Suspect]
     Active Substance: ESTRADIOL
     Indication: Urinary tract infection
  3. ESTRADIOL [Suspect]
     Active Substance: ESTRADIOL

REACTIONS (5)
  - Incorrect dose administered by product [Unknown]
  - Malabsorption from application site [Unknown]
  - Product delivery mechanism issue [Unknown]
  - Liquid product physical issue [Unknown]
  - Product packaging quantity issue [Unknown]
